FAERS Safety Report 5164334-8 (Version None)
Quarter: 2006Q4

REPORT INFORMATION
  Report Type: 
  Country: None (occurrence: None)
  Receive Date: 20061127
  Receipt Date: 20061127
  Transmission Date: 20070319
  Serious: Yes (Hospitalization)
  Sender: FDA-Public Use
  Company Number: None

PATIENT
  Age: 67 Year
  Sex: Male

DRUGS (4)
  1. AMIODARONE HCL [Suspect]
     Indication: ARRHYTHMIA
  2. VYTORIN [Concomitant]
  3. NORVASC [Concomitant]
  4. ATENOLOL [Concomitant]

REACTIONS (1)
  - HYPERTHYROIDISM [None]
